FAERS Safety Report 8171539-0 (Version None)
Quarter: 2012Q1

REPORT INFORMATION
  Report Type: 
  Country: None (occurrence: None)
  Receive Date: 20120104
  Receipt Date: 20110920
  Transmission Date: 20120608
  Serious: No
  Sender: FDA-Public Use
  Company Number: 2011HGS-002530

PATIENT
  Age: 43 Year
  Sex: Female
  Weight: 117.4816 kg

DRUGS (3)
  1. PLAQUENIL (HYDROXYCHLOROQUINE SULFATE) (HYDROXYCHLOROQUINE SULFATE) [Concomitant]
  2. PREDNISONE TAB [Concomitant]
  3. BENLYSTA [Suspect]
     Indication: SYSTEMIC LUPUS ERYTHEMATOSUS
     Dosage: INTRAVENOUS DRIP
     Route: 041
     Dates: start: 20110831

REACTIONS (9)
  - DRY MOUTH [None]
  - PARAESTHESIA [None]
  - THROAT TIGHTNESS [None]
  - COUGH [None]
  - NERVOUSNESS [None]
  - DYSPHAGIA [None]
  - LOWER RESPIRATORY TRACT INFECTION [None]
  - LYMPHADENOPATHY [None]
  - DIARRHOEA [None]
